FAERS Safety Report 6161367-X (Version None)
Quarter: 2009Q2

REPORT INFORMATION
  Report Type: 
  Country: None (occurrence: None)
  Receive Date: 20090421
  Receipt Date: 20070305
  Transmission Date: 20091009
  Serious: Yes (Hospitalization, Other)
  Sender: FDA-Public Use
  Company Number: US-ASTRAZENECA-2006UW27625

PATIENT
  Age: 18670 Day
  Sex: Male
  Weight: 131.5 kg

DRUGS (25)
  1. SEROQUEL [Suspect]
     Indication: ANXIETY
     Dosage: 150 MG
     Route: 048
     Dates: start: 20010501, end: 20061201
  2. SEROQUEL [Suspect]
     Indication: SCHIZOAFFECTIVE DISORDER
     Dosage: 150 MG
     Route: 048
     Dates: start: 20010501, end: 20061201
  3. SEROQUEL [Suspect]
     Dosage: 25-125 MG
     Route: 048
  4. SEROQUEL [Suspect]
     Dosage: 25-125 MG
     Route: 048
  5. ABILIFY [Concomitant]
  6. LIPITOR [Concomitant]
  7. ZYBAN [Concomitant]
  8. COMBIVENT [Concomitant]
  9. COREG [Concomitant]
  10. CORDARONE [Concomitant]
  11. LEVOTHROID [Concomitant]
  12. VICODIN [Concomitant]
  13. PRINIVIL [Concomitant]
  14. AVANDIA [Concomitant]
  15. TYLENOL [Concomitant]
  16. ASPIRIN [Concomitant]
  17. MOBIC [Concomitant]
  18. GLUCOPHAGE [Concomitant]
  19. CAPOTEN [Concomitant]
  20. ZOCOR [Concomitant]
  21. VASOTEC [Concomitant]
  22. CELEXA [Concomitant]
  23. COUMADIN [Concomitant]
  24. LORTAB [Concomitant]
  25. ACCUPRIL [Concomitant]

REACTIONS (45)
  - AFFECTIVE DISORDER [None]
  - AGITATION [None]
  - ANAEMIA POSTOPERATIVE [None]
  - ATRIAL FIBRILLATION [None]
  - ATRIAL FLUTTER [None]
  - BACK PAIN [None]
  - BRONCHITIS [None]
  - CARDIAC FAILURE CONGESTIVE [None]
  - CARDIOGENIC SHOCK [None]
  - COGNITIVE DISORDER [None]
  - CONVULSION [None]
  - CORONARY ARTERY DISEASE [None]
  - DERMAL CYST [None]
  - ERECTILE DYSFUNCTION [None]
  - FLUID RETENTION [None]
  - HEPATOMEGALY [None]
  - HYPERGLYCAEMIA [None]
  - HYPERHIDROSIS [None]
  - HYPERTENSION [None]
  - HYPOCHLORAEMIA [None]
  - HYPONATRAEMIA [None]
  - HYPOTENSION [None]
  - HYPOXIA [None]
  - INFECTED CYST [None]
  - INTERTRIGO [None]
  - LEFT VENTRICULAR DYSFUNCTION [None]
  - MITRAL VALVE INCOMPETENCE [None]
  - MYOCARDIAL INFARCTION [None]
  - NAUSEA [None]
  - OEDEMA PERIPHERAL [None]
  - PAIN IN EXTREMITY [None]
  - POLYURIA [None]
  - PRESYNCOPE [None]
  - PSORIASIS [None]
  - PULMONARY HYPERTENSION [None]
  - PYREXIA [None]
  - RENAL FAILURE [None]
  - RETRACTED NIPPLE [None]
  - SKIN LACERATION [None]
  - SPLENOMEGALY [None]
  - TONGUE INJURY [None]
  - TOOTH ABSCESS [None]
  - TYPE 1 DIABETES MELLITUS [None]
  - WEIGHT INCREASED [None]
  - WOUND INFECTION STAPHYLOCOCCAL [None]
